FAERS Safety Report 25052326 (Version 1)
Quarter: 2025Q1

REPORT INFORMATION
  Report Type: Spontaneous
  Country: CA (occurrence: CA)
  Receive Date: 20250307
  Receipt Date: 20250307
  Transmission Date: 20250409
  Serious: Yes (Other)
  Sender: PFIZER
  Company Number: CA-PFIZER INC-PV202400124846

PATIENT
  Age: 57 Year
  Sex: Female

DRUGS (6)
  1. IBRANCE [Suspect]
     Active Substance: PALBOCICLIB
     Indication: Breast cancer metastatic
     Dates: start: 20240925
  2. IBRANCE [Suspect]
     Active Substance: PALBOCICLIB
  3. LETROZOLE [Concomitant]
     Active Substance: LETROZOLE
     Dates: start: 20240917
  4. ZOLEDRONIC ACID [Concomitant]
     Active Substance: ZOLEDRONIC ACID
  5. LASIX [Concomitant]
     Active Substance: FUROSEMIDE
     Dosage: 20 MG, DAILY
  6. SPIRONOLACTONE [Concomitant]
     Active Substance: SPIRONOLACTONE
     Dosage: 25 MG, DAILY

REACTIONS (7)
  - Neuropathy peripheral [Unknown]
  - Tenderness [Not Recovered/Not Resolved]
  - Fatigue [Not Recovered/Not Resolved]
  - Insomnia [Unknown]
  - Nasopharyngitis [Recovered/Resolved]
  - Back pain [Recovering/Resolving]
  - Musculoskeletal discomfort [Not Recovered/Not Resolved]

NARRATIVE: CASE EVENT DATE: 20250101
